FAERS Safety Report 5331987-0 (Version None)
Quarter: 2007Q2

REPORT INFORMATION
  Report Type: 
  Country: None (occurrence: None)
  Receive Date: 20070306
  Receipt Date: 20060510
  Transmission Date: 20071010
  Serious: Yes (Hospitalization)
  Sender: FDA-Public Use
  Company Number: A03200602955

PATIENT
  Age: 77 Year
  Sex: Female

DRUGS (13)
  1. PLAVIX [Suspect]
     Indication: ATRIAL FIBRILLATION
     Dosage: 75 MG QD - ORAL
     Route: 048
     Dates: start: 20040101
  2. PLAVIX [Suspect]
     Indication: COAGULOPATHY
     Dosage: 75 MG QD - ORAL
     Route: 048
     Dates: start: 20040101
  3. WARFARIN SODIUM [Concomitant]
  4. ENALAPRIL MALEATE [Concomitant]
  5. LEVOTHROXYINE SODIUM [Concomitant]
  6. SOTALOL HYDROCHLORIDE [Concomitant]
  7. FUROSEMIDE [Concomitant]
  8. COLACE [Concomitant]
  9. MULTI-VITAMIN [Concomitant]
  10. CALTRATE [Concomitant]
  11. ASCORBIC ACID [Concomitant]
  12. VITAMIN E [Concomitant]
  13. MINERAL SUPPLEMENTS [Concomitant]

REACTIONS (3)
  - CEREBROVASCULAR ACCIDENT [None]
  - EATING DISORDER SYMPTOM [None]
  - FLAT AFFECT [None]
